FAERS Safety Report 13938882 (Version 8)
Quarter: 2018Q2

REPORT INFORMATION
  Report Type: Report from Study
  Country: DE (occurrence: DE)
  Receive Date: 20170906
  Receipt Date: 20180628
  Transmission Date: 20180711
  Serious: Yes (Life-Threatening, Hospitalization, Other)
  Sender: FDA-Public Use
  Company Number: DE-TAKEDA-2017MPI007386

PATIENT
  Age: 53 Year
  Sex: Male
  Weight: 86.5 kg

DRUGS (15)
  1. DECADRON [Suspect]
     Active Substance: DEXAMETHASONE
     Dosage: 20 MG, UNK
     Route: 048
     Dates: start: 20171113, end: 20171224
  2. ADRIAMYCIN [Suspect]
     Active Substance: DOXORUBICIN HYDROCHLORIDE
     Indication: PLASMA CELL MYELOMA
     Dosage: 15 MG/M2, UNK
     Route: 042
     Dates: start: 20170627, end: 20170630
  3. CYTOXAN [Suspect]
     Active Substance: CYCLOPHOSPHAMIDE
     Indication: PLASMA CELL MYELOMA
     Dosage: 1000 MG/M2, UNK
     Route: 042
     Dates: start: 20170627, end: 20170630
  4. VELCADE [Suspect]
     Active Substance: BORTEZOMIB
     Dosage: 1.3 MG/M2, UNK
     Route: 058
     Dates: start: 20171113, end: 20171224
  5. DECADRON [Suspect]
     Active Substance: DEXAMETHASONE
     Indication: PLASMA CELL MYELOMA
     Dosage: 8 MG, UNK
     Route: 048
     Dates: start: 20170307, end: 20170619
  6. REVLIMID [Suspect]
     Active Substance: LENALIDOMIDE
     Dosage: 25 MG, UNK
     Route: 048
     Dates: start: 20171113, end: 20171224
  7. EMPLICITI [Suspect]
     Active Substance: ELOTUZUMAB
     Indication: PLASMA CELL MYELOMA
     Dosage: 10 MG/KG, UNK
     Route: 042
     Dates: start: 20170307, end: 20170619
  8. VELCADE [Suspect]
     Active Substance: BORTEZOMIB
     Indication: PLASMA CELL MYELOMA
     Dosage: 1.3 MG/M2, UNK
     Route: 058
     Dates: start: 20170307, end: 20170405
  9. REVLIMID [Suspect]
     Active Substance: LENALIDOMIDE
     Indication: PLASMA CELL MYELOMA
     Dosage: 25 MG, UNK
     Route: 048
     Dates: start: 20170307, end: 20170619
  10. DECADRON [Suspect]
     Active Substance: DEXAMETHASONE
     Dosage: 40 MG, UNK
     Route: 048
     Dates: start: 20170627, end: 20170630
  11. DECADRON [Suspect]
     Active Substance: DEXAMETHASONE
     Dosage: 12 MG, UNK
     Route: 048
     Dates: start: 20180206
  12. DECADRON [Suspect]
     Active Substance: DEXAMETHASONE
     Dosage: 20 MG, UNK
     Route: 048
     Dates: start: 20170307, end: 20170619
  13. DECADRON [Suspect]
     Active Substance: DEXAMETHASONE
     Dosage: 12 MG, UNK
     Route: 042
     Dates: start: 20170307, end: 20170619
  14. REVLIMID [Suspect]
     Active Substance: LENALIDOMIDE
     Dosage: 10 MG, QD
     Route: 048
     Dates: start: 20180206
  15. MELPHALAN. [Concomitant]
     Active Substance: MELPHALAN
     Dosage: 100 MG/M2, UNK
     Route: 042

REACTIONS (8)
  - Malabsorption [Recovered/Resolved with Sequelae]
  - Ileostomy [Recovered/Resolved]
  - Abdominal wall abscess [Recovered/Resolved]
  - Colon operation [Recovered/Resolved with Sequelae]
  - Vomiting [Recovered/Resolved with Sequelae]
  - Decreased appetite [Recovered/Resolved with Sequelae]
  - Septic shock [Recovered/Resolved with Sequelae]
  - Nausea [Recovered/Resolved with Sequelae]

NARRATIVE: CASE EVENT DATE: 20170405
